FAERS Safety Report 5905802-8 (Version None)
Quarter: 2008Q4

REPORT INFORMATION
  Report Type: 
  Country: None (occurrence: None)
  Receive Date: 20081002
  Receipt Date: 20080929
  Transmission Date: 20090506
  Serious: Yes (Other)
  Sender: FDA-Public Use
  Company Number: B0518449A

PATIENT
  Age: 38 Year
  Sex: Male

DRUGS (12)
  1. ARRANON [Suspect]
     Dosage: 2600MG PER DAY
     Route: 065
     Dates: start: 20080402, end: 20080423
  2. KYTRIL [Concomitant]
     Indication: PROPHYLAXIS OF NAUSEA AND VOMITING
     Dosage: 6MG PER DAY
     Dates: start: 20080423, end: 20080423
  3. SEISHOKU [Concomitant]
     Dates: start: 20080423, end: 20080429
  4. MEYLON [Concomitant]
     Dates: start: 20080423, end: 20080429
  5. GLUCOSE [Concomitant]
     Dates: start: 20080423, end: 20080429
  6. UNKNOWN MEDICATION [Concomitant]
     Dates: start: 20080423, end: 20080429
  7. LANSOPRAZOLE [Concomitant]
     Dosage: 30MG PER DAY
     Route: 048
  8. MAGMITT [Concomitant]
     Dosage: 990MG PER DAY
     Route: 048
  9. ITRIZOLE [Concomitant]
     Dosage: 200MG PER DAY
     Route: 048
  10. CIPROFLOXACIN [Concomitant]
     Dosage: 600MG PER DAY
     Route: 048
  11. ZYLORIC [Concomitant]
     Dosage: 300MG PER DAY
     Route: 048
  12. COTRIM [Concomitant]
     Route: 048

REACTIONS (3)
  - MOBILITY DECREASED [None]
  - PYREXIA [None]
  - VERTIGO [None]
